FAERS Safety Report 18855757 (Version 3)
Quarter: 2021Q1

REPORT INFORMATION
  Report Type: Spontaneous
  Country: US (occurrence: US)
  Receive Date: 20210205
  Receipt Date: 20210224
  Transmission Date: 20210420
  Serious: Yes (Other)
  Sender: FDA-Public Use
  Company Number: US-BIOMARINAP-US-2021-134879

PATIENT
  Age: 50 Year
  Sex: Female

DRUGS (1)
  1. ALDURAZYME [Suspect]
     Active Substance: LARONIDASE
     Indication: MUCOPOLYSACCHARIDOSIS I
     Dosage: 29 MILLIGRAM, QW
     Route: 042
     Dates: start: 200608

REACTIONS (3)
  - Visual field defect [Unknown]
  - Neck pain [Unknown]
  - Hypothyroidism [Unknown]
